FAERS Safety Report 12086206 (Version 1)
Quarter: 2016Q1

REPORT INFORMATION
  Report Type: Spontaneous
  Country: US (occurrence: US)
  Receive Date: 20160217
  Receipt Date: 20160217
  Transmission Date: 20160526
  Serious: No
  Sender: FDA-Public Use
  Company Number: US-TAKEDA-2015TUS006516

PATIENT
  Age: 71 Year
  Sex: Male

DRUGS (1)
  1. PREVACID [Suspect]
     Active Substance: LANSOPRAZOLE
     Indication: GASTROOESOPHAGEAL REFLUX DISEASE
     Dosage: 1 DF, UNK
     Route: 065

REACTIONS (4)
  - Incorrect drug administration duration [Not Recovered/Not Resolved]
  - Off label use [Not Recovered/Not Resolved]
  - Gastrooesophageal reflux disease [Unknown]
  - Inappropriate schedule of drug administration [Not Recovered/Not Resolved]
